FAERS Safety Report 4463353-4 (Version None)
Quarter: 2004Q3

REPORT INFORMATION
  Report Type: 
  Country: None (occurrence: None)
  Receive Date: 20040928
  Receipt Date: 20040915
  Transmission Date: 20050211
  Serious: No
  Sender: FDA-Public Use
  Company Number: 12646501

PATIENT
  Age: 42 Year
  Sex: Female

DRUGS (1)
  1. REVIA [Suspect]
     Indication: ALCOHOLISM
     Dosage: 50 MILLIGRAM 1/1 DAY ORAL
     Route: 048
     Dates: start: 20031014

REACTIONS (4)
  - ABORTION INDUCED [None]
  - DRUG EXPOSURE DURING PREGNANCY [None]
  - HAEMORRHAGE [None]
  - PREGNANCY [None]
